FAERS Safety Report 4650441-2 (Version None)
Quarter: 2005Q2

REPORT INFORMATION
  Report Type: 
  Country: None (occurrence: None)
  Receive Date: 20050429
  Receipt Date: 20050414
  Transmission Date: 20051028
  Serious: Yes (Other)
  Sender: FDA-Public Use
  Company Number: 2005S1000124

PATIENT
  Sex: Female

DRUGS (2)
  1. ACITRETIN (ACITRETIN) [Suspect]
     Dosage: 50 MG; QD; PO
     Route: 048
  2. ACITRETIN (ACITRETIN) [Suspect]
     Dosage: 25 MG; QD; PO
     Route: 048

REACTIONS (2)
  - PREGNANCY [None]
  - TRANSMISSION OF DRUG VIA SEMEN [None]
